FAERS Safety Report 8219701-2 (Version None)
Quarter: 2012Q1

REPORT INFORMATION
  Report Type: 
  Country: None (occurrence: None)
  Receive Date: 20120319
  Receipt Date: 20120309
  Transmission Date: 20120608
  Serious: Yes (Other)
  Sender: FDA-Public Use
  Company Number: US-ASTRAZENECA-2011SE52309

PATIENT
  Age: 68 Year
  Sex: Female

DRUGS (1)
  1. NEXIUM [Suspect]
     Route: 048

REACTIONS (12)
  - TYMPANIC MEMBRANE PERFORATION [None]
  - DEPRESSION [None]
  - VISUAL ACUITY REDUCED [None]
  - MALAISE [None]
  - ADVERSE EVENT [None]
  - HYPERTENSION [None]
  - BLOOD CHOLESTEROL ABNORMAL [None]
  - DEAFNESS UNILATERAL [None]
  - HEARING IMPAIRED [None]
  - DYSPHONIA [None]
  - DYSPEPSIA [None]
  - PAIN [None]
